FAERS Safety Report 9686352 (Version 3)
Quarter: 2014Q2

REPORT INFORMATION
  Report Type: Spontaneous
  Country: US (occurrence: US)
  Receive Date: 20131113
  Receipt Date: 20140516
  Transmission Date: 20141212
  Serious: Yes (Death, Hospitalization)
  Sender: FDA-Public Use
  Company Number: US-B.I. PHARMACEUTICALS,INC./RIDGEFIELD-2013-BI-36362BP

PATIENT
  Sex: Female
  Weight: 77.56 kg

DRUGS (18)
  1. PRADAXA [Suspect]
     Indication: ANTICOAGULANT THERAPY
     Dosage: 300 MG
     Route: 065
     Dates: start: 20120401, end: 20120519
  2. ATENOLOL [Concomitant]
     Route: 065
     Dates: start: 2009, end: 2012
  3. CARDIZEM [Concomitant]
     Route: 065
     Dates: start: 2006, end: 2012
  4. LASIX [Concomitant]
     Route: 065
     Dates: start: 2003, end: 2012
  5. LIPITOR [Concomitant]
     Route: 065
     Dates: start: 2003, end: 2012
  6. LOPERAMIDE [Concomitant]
     Route: 065
     Dates: start: 2006, end: 2012
  7. OS-CAL [Concomitant]
     Route: 065
     Dates: start: 2006, end: 2012
  8. POTASSIUM [Concomitant]
     Route: 065
     Dates: start: 2001, end: 2012
  9. PREVACID [Concomitant]
     Route: 065
     Dates: start: 2003, end: 2012
  10. PROAIR HFA [Concomitant]
     Route: 065
     Dates: start: 2009, end: 2012
  11. SPIRIVA [Concomitant]
     Route: 065
     Dates: start: 2009, end: 2012
  12. XOPENEX INHALER [Concomitant]
     Route: 065
     Dates: start: 2009, end: 2012
  13. ZOLOFT [Concomitant]
     Route: 065
     Dates: start: 2002, end: 2012
  14. SYMBICORT [Concomitant]
     Route: 065
  15. VITAMIN C [Concomitant]
     Route: 065
  16. VITAMIN D [Concomitant]
     Route: 065
  17. AMIODARONE [Concomitant]
     Dosage: 200 MG
     Route: 065
  18. BABY ASPIRIN [Concomitant]
     Route: 065

REACTIONS (5)
  - Haemoptysis [Fatal]
  - Pneumonia [Fatal]
  - Respiratory failure [Fatal]
  - Anaemia [Unknown]
  - Epistaxis [Unknown]
